FAERS Safety Report 9343690 (Version 3)
Quarter: 2014Q2

REPORT INFORMATION
  Report Type: Report from Study
  Country: CN (occurrence: CN)
  Receive Date: 20130612
  Receipt Date: 20140515
  Transmission Date: 20141212
  Serious: Yes (Other)
  Sender: FDA-Public Use
  Company Number: PHHY2013CN058828

PATIENT
  Age: 4 Year
  Sex: Male

DRUGS (2)
  1. ICL670A [Suspect]
     Indication: IRON OVERLOAD
     Dosage: 500 MG, QD
     Route: 048
     Dates: start: 20111210, end: 20130620
  2. GLUTATHIONE [Concomitant]
     Indication: PROPHYLAXIS
     Dosage: 0.1 G, BID
     Route: 048
     Dates: start: 20130525, end: 20130622

REACTIONS (6)
  - Arrhythmia [Recovering/Resolving]
  - Blood pressure decreased [Recovering/Resolving]
  - Serum ferritin increased [Recovering/Resolving]
  - Alanine aminotransferase increased [Recovered/Resolved]
  - Aspartate aminotransferase increased [Recovered/Resolved]
  - Heart rate increased [Not Recovered/Not Resolved]
